FAERS Safety Report 23684771 (Version 1)
Quarter: 2024Q1

REPORT INFORMATION
  Report Type: Spontaneous
  Country: US (occurrence: US)
  Receive Date: 20240328
  Receipt Date: 20240328
  Transmission Date: 20240409
  Serious: No
  Sender: FDA-Public Use
  Company Number: US-TEVA-VS-3164159

PATIENT

DRUGS (1)
  1. AUSTEDO [Suspect]
     Active Substance: DEUTETRABENAZINE
     Dosage: PATIENT TAKING 9 MG OF AUSTEDO IN THE MORNING AND 12 MG AT NIGHT-OFF LABEL DOSING
     Route: 065

REACTIONS (1)
  - Off label use [Unknown]
